FAERS Safety Report 5126050-8 (Version None)
Quarter: 2006Q4

REPORT INFORMATION
  Report Type: 
  Country: None (occurrence: None)
  Receive Date: 20061012
  Receipt Date: 20060324
  Transmission Date: 20070319
  Serious: Yes (Hospitalization)
  Sender: FDA-Public Use
  Company Number: DE-ROCHE-441888

PATIENT
  Age: 19 Year
  Sex: Female
  Weight: 58 kg

DRUGS (2)
  1. ROACCUTAN [Suspect]
     Indication: ACNE
     Route: 065
     Dates: start: 20051015, end: 20051215
  2. CONTRACEPTIVE [Concomitant]

REACTIONS (3)
  - PLEURAL EFFUSION [None]
  - PNEUMOTHORAX [None]
  - POST PROCEDURAL COMPLICATION [None]
